FAERS Safety Report 9746211 (Version 2)
Quarter: 2013Q4

REPORT INFORMATION
  Report Type: Spontaneous
  Country: FR (occurrence: FR)
  Receive Date: 20131211
  Receipt Date: 20131223
  Transmission Date: 20140711
  Serious: Yes (Other)
  Sender: FDA-Public Use
  Company Number: FR-TEVA-449015ISR

PATIENT
  Age: 53 Year
  Sex: Male

DRUGS (2)
  1. PIROXICAM [Suspect]
     Indication: TENDONITIS
     Route: 013
     Dates: start: 201206
  2. PROCAINE [Suspect]
     Indication: TENDONITIS
     Route: 013
     Dates: start: 201206

REACTIONS (2)
  - Embolia cutis medicamentosa [Recovered/Resolved]
  - Incorrect route of drug administration [Recovered/Resolved]
